FAERS Safety Report 4950968-X (Version None)
Quarter: 2006Q1

REPORT INFORMATION
  Report Type: 
  Country: None (occurrence: None)
  Receive Date: 20060315
  Receipt Date: 20060227
  Transmission Date: 20060701
  Serious: Yes (Hospitalization)
  Sender: FDA-Public Use
  Company Number: FR200603000028

PATIENT
  Age: 69 Year
  Sex: Female
  Weight: 70 kg

DRUGS (8)
  1. PROZAC [Suspect]
     Indication: DYSTHYMIC DISORDER
     Dosage: SEE IMAGE
     Route: 048
     Dates: end: 20051121
  2. PROZAC [Suspect]
     Indication: DYSTHYMIC DISORDER
     Dosage: SEE IMAGE
     Route: 048
     Dates: start: 20051122, end: 20051128
  3. PROZAC [Suspect]
     Indication: DYSTHYMIC DISORDER
     Dosage: SEE IMAGE
     Route: 048
     Dates: start: 20051129, end: 20051130
  4. MOTILIUM [Concomitant]
  5. OMEPRAZOLE [Concomitant]
  6. TARDYFERON /GFR/ (FERROUS SULFATE) [Concomitant]
  7. POTASSIUM CHLORIDE [Concomitant]
  8. MORPHINE SULFATE [Concomitant]

REACTIONS (4)
  - HYPOALBUMINAEMIA [None]
  - MALNUTRITION [None]
  - PREALBUMIN DECREASED [None]
  - WEIGHT DECREASED [None]
